FAERS Safety Report 8858824 (Version 1)
Quarter: 2012Q4

REPORT INFORMATION
  Report Type: Report from Study
  Country: US (occurrence: US)
  Receive Date: 20121024
  Receipt Date: 20121024
  Transmission Date: 20130627
  Serious: Yes (Other)
  Sender: FDA-Public Use
  Company Number: US-JNJFOC-20121010072

PATIENT
  Age: 41 Year
  Sex: Female

DRUGS (4)
  1. REMICADE [Suspect]
     Indication: CROHN^S DISEASE
     Dosage: now on her 5th infliximab treatment
     Route: 042
  2. CALCIUM [Concomitant]
  3. IRON [Concomitant]
  4. MULTIVITAMINS [Concomitant]

REACTIONS (3)
  - Colitis ulcerative [Not Recovered/Not Resolved]
  - Transfusion [Unknown]
  - Cough [Not Recovered/Not Resolved]
